FAERS Safety Report 9405202 (Version 1)
Quarter: 2013Q3

REPORT INFORMATION
  Report Type: Spontaneous
  Country: JP (occurrence: JP)
  Receive Date: 20130717
  Receipt Date: 20130717
  Transmission Date: 20140515
  Serious: Yes (Death, Hospitalization)
  Sender: FDA-Public Use
  Company Number: PHHY2013JP074720

PATIENT
  Age: 61 Year
  Sex: Female

DRUGS (4)
  1. METHOTREXATE [Suspect]
     Indication: RHEUMATOID ARTHRITIS
  2. PREDNISOLONE [Suspect]
     Indication: RHEUMATOID ARTHRITIS
  3. TUMOR NECROSIS FACTOR ALPHA (TNF-) INHIBITORS [Suspect]
     Indication: RHEUMATOID ARTHRITIS
  4. ABATACEPT [Suspect]
     Indication: RHEUMATOID ARTHRITIS
     Dosage: 500 MG, EVERY 30 DAYS

REACTIONS (16)
  - Sepsis [Fatal]
  - Fungal infection [Fatal]
  - Acute disseminated encephalomyelitis [Unknown]
  - Altered state of consciousness [Unknown]
  - Gait disturbance [Unknown]
  - Somnolence [Unknown]
  - Paraplegia [Unknown]
  - Lymphopenia [Unknown]
  - Pleocytosis [Unknown]
  - Central nervous system lesion [Unknown]
  - Blindness [Unknown]
  - Cytomegalovirus chorioretinitis [Unknown]
  - Pneumonia [Unknown]
  - Herpes zoster [Unknown]
  - Epstein-Barr virus infection [Unknown]
  - Cytomegalovirus infection [Unknown]
